FAERS Safety Report 14893374 (Version 1)
Quarter: 2018Q2

REPORT INFORMATION
  Report Type: Spontaneous
  Country: IT (occurrence: IT)
  Receive Date: 20180514
  Receipt Date: 20180514
  Transmission Date: 20180711
  Serious: Yes (Hospitalization)
  Sender: FDA-Public Use
  Company Number: IT-ABBVIE-18P-083-2350473-00

PATIENT
  Age: 28 Year
  Sex: Male

DRUGS (1)
  1. VALPROATE SODIUM. [Suspect]
     Active Substance: VALPROATE SODIUM
     Indication: PRODUCT USED FOR UNKNOWN INDICATION
     Route: 065

REACTIONS (5)
  - Myoclonus [Recovered/Resolved]
  - Generalised tonic-clonic seizure [Recovered/Resolved]
  - Cognitive disorder [Recovered/Resolved]
  - Autoimmune encephalopathy [Recovered/Resolved]
  - Electroencephalogram abnormal [Recovered/Resolved]
